FAERS Safety Report 10485392 (Version 2)
Quarter: 2014Q3

REPORT INFORMATION
  Report Type: Spontaneous
  Country: US (occurrence: US)
  Receive Date: 20140930
  Receipt Date: 20140930
  Transmission Date: 20150326
  Serious: Yes (Death)
  Sender: FDA-Public Use
  Company Number: US-CELGENE-163-21880-14021194

PATIENT
  Age: 83 Year
  Sex: Female

DRUGS (5)
  1. FLORINEF ACETATE [Concomitant]
     Active Substance: FLUDROCORTISONE ACETATE
     Indication: ADRENAL INSUFFICIENCY
     Route: 065
     Dates: end: 20140220
  2. SYNTHROID [Concomitant]
     Active Substance: LEVOTHYROXINE SODIUM
     Indication: HYPOTHYROIDISM
     Route: 065
     Dates: end: 20140226
  3. REVLIMID [Suspect]
     Active Substance: LENALIDOMIDE
     Indication: MYELODYSPLASTIC SYNDROME
     Dosage: 10 MILLIGRAM
     Route: 048
     Dates: start: 201312, end: 20140203
  4. FERROUS SULFATE [Concomitant]
     Active Substance: FERROUS SULFATE\FERROUS SULFATE, DRIED
     Indication: ANAEMIA
     Dosage: .025 MILLIGRAM
     Route: 065
     Dates: end: 20140220
  5. VITAMIN D [Concomitant]
     Active Substance: CHOLECALCIFEROL
     Indication: ANAEMIA
     Dosage: .65 MILLIGRAM
     Route: 065
     Dates: end: 20140220

REACTIONS (6)
  - Renal failure acute [Fatal]
  - Pneumonia [Fatal]
  - Red blood cell count decreased [Not Recovered/Not Resolved]
  - Cellulitis [Fatal]
  - Pulmonary oedema [Fatal]
  - Sepsis [Fatal]

NARRATIVE: CASE EVENT DATE: 20140203
